FAERS Safety Report 19956220 (Version 1)
Quarter: 2021Q4

REPORT INFORMATION
  Report Type: Spontaneous
  Country: US (occurrence: US)
  Receive Date: 20211014
  Receipt Date: 20211014
  Transmission Date: 20220303
  Serious: No
  Sender: FDA-Public Use
  Company Number: US-DRREDDYS-SPO/USA/21/0142549

PATIENT
  Age: 12 Year
  Sex: Female

DRUGS (1)
  1. ZENATANE [Suspect]
     Active Substance: ISOTRETINOIN
     Indication: Product used for unknown indication
     Dosage: RMA ISSUE DATE: 20 APRIL 2021 9:41:51 PM, 21 APRIL 2021 11:35:19 AM, 23 MAY 2021 4:26:36 PM, 03 AUGU

REACTIONS (1)
  - Blood triglycerides increased [Unknown]
